FAERS Safety Report 7137364-4 (Version None)
Quarter: 2010Q4

REPORT INFORMATION
  Report Type: 
  Country: None (occurrence: None)
  Receive Date: 20101206
  Receipt Date: 20101125
  Transmission Date: 20110411
  Serious: Yes (Other)
  Sender: FDA-Public Use
  Company Number: PHFR2010GB04311

PATIENT
  Sex: Female
  Weight: 50 kg

DRUGS (1)
  1. GLIVEC [Suspect]
     Dosage: 400 MG, UNK
     Dates: start: 20100510, end: 20100903

REACTIONS (4)
  - NO THERAPEUTIC RESPONSE [None]
  - PRURITUS [None]
  - RASH [None]
  - RASH GENERALISED [None]
